FAERS Safety Report 20289412 (Version 2)
Quarter: 2022Q1

REPORT INFORMATION
  Report Type: Spontaneous
  Country: US (occurrence: US)
  Receive Date: 20220104
  Receipt Date: 20220304
  Transmission Date: 20220423
  Serious: Yes (Other)
  Sender: FDA-Public Use
  Company Number: US-ABBVIE-21K-163-4216943-00

PATIENT
  Age: 64 Year
  Sex: Female
  Weight: 70.370 kg

DRUGS (7)
  1. MAVYRET [Suspect]
     Active Substance: GLECAPREVIR\PIBRENTASVIR
     Indication: Chronic hepatitis C
     Route: 048
     Dates: start: 202111
  2. TAMSULOSIN [Suspect]
     Active Substance: TAMSULOSIN
     Indication: Product used for unknown indication
     Route: 065
  3. OXYCODONE [Concomitant]
     Active Substance: OXYCODONE
     Indication: Product used for unknown indication
     Route: 065
  4. TYLENOL [Concomitant]
     Active Substance: ACETAMINOPHEN
     Indication: Product used for unknown indication
     Route: 065
  5. IBUPROFEN [Concomitant]
     Active Substance: IBUPROFEN
     Indication: Product used for unknown indication
     Route: 065
  6. PANTOPRAZOLE [Concomitant]
     Active Substance: PANTOPRAZOLE
     Indication: Irritable bowel syndrome
     Route: 065
  7. FUROSEMIDE [Concomitant]
     Active Substance: FUROSEMIDE
     Indication: Product used for unknown indication
     Route: 065

REACTIONS (12)
  - Coronary artery occlusion [Not Recovered/Not Resolved]
  - Abdominal pain [Recovered/Resolved]
  - Disturbance in attention [Recovered/Resolved]
  - Wrong product administered [Unknown]
  - Head discomfort [Recovered/Resolved]
  - Erythema [Recovered/Resolved]
  - Fear [Recovered/Resolved]
  - Panic reaction [Recovered/Resolved]
  - Osteoporosis [Unknown]
  - Asthma [Unknown]
  - Oedema peripheral [Unknown]
  - Headache [Recovering/Resolving]

NARRATIVE: CASE EVENT DATE: 20211101
